FAERS Safety Report 9861898 (Version 2)
Quarter: 2014Q1

REPORT INFORMATION
  Report Type: Spontaneous
  Country: DE (occurrence: DE)
  Receive Date: 20140203
  Receipt Date: 20140324
  Transmission Date: 20141002
  Serious: Yes (Hospitalization)
  Sender: FDA-Public Use
  Company Number: DE-JNJFOC-20140117071

PATIENT
  Age: 87 Year
  Sex: Female
  Weight: 61 kg

DRUGS (10)
  1. XARELTO [Suspect]
     Indication: ATRIAL FIBRILLATION
     Route: 048
  2. XARELTO [Suspect]
     Indication: CEREBROVASCULAR ACCIDENT PROPHYLAXIS
     Route: 048
  3. TRANSTEC [Concomitant]
     Dosage: 35 UG/H JD. 3 TAG
     Route: 065
  4. AMLODIPINE [Concomitant]
     Route: 048
  5. OMEPRAZOLE [Concomitant]
     Route: 065
  6. METAMIZOL [Concomitant]
     Route: 048
  7. AMITRIPTYLINE [Concomitant]
     Route: 048
  8. METOPROLOL [Concomitant]
     Dosage: 245 TABLET
     Route: 048
  9. RAMIPRIL [Concomitant]
     Route: 065
  10. MCP [Concomitant]
     Route: 048

REACTIONS (1)
  - Embolic cerebral infarction [Not Recovered/Not Resolved]
